FAERS Safety Report 9519355 (Version 1)
Quarter: 2013Q3

REPORT INFORMATION
  Report Type: Spontaneous
  Country: US (occurrence: None)
  Receive Date: 20130911
  Receipt Date: 20130911
  Transmission Date: 20140515
  Serious: No
  Sender: FDA-Public Use
  Company Number: None

PATIENT
  Age: 86 Year
  Sex: Male
  Weight: 96.4 kg

DRUGS (1)
  1. TERAZOSIN [Suspect]
     Indication: URINARY TRACT DISORDER
     Dosage: 5 MG  EVERY DAY  PO
     Route: 048
     Dates: start: 20100429, end: 20120608

REACTIONS (3)
  - Nasal congestion [None]
  - Wheezing [None]
  - Cough [None]
